FAERS Safety Report 7494080-7 (Version None)
Quarter: 2011Q2

REPORT INFORMATION
  Report Type: 
  Country: None (occurrence: None)
  Receive Date: 20110520
  Receipt Date: 20110513
  Transmission Date: 20111010
  Serious: Yes (Other)
  Sender: FDA-Public Use
  Company Number: US-SANOFI-AVENTIS-2011SA030337

PATIENT
  Sex: Female

DRUGS (2)
  1. HUMALOG [Concomitant]
     Dates: start: 19950101
  2. LANTUS [Suspect]
     Dosage: DOSE:65 UNIT(S)
     Route: 058
     Dates: start: 19950101

REACTIONS (1)
  - BLADDER CANCER [None]
